FAERS Safety Report 4944676-9 (Version None)
Quarter: 2006Q1

REPORT INFORMATION
  Report Type: 
  Country: None (occurrence: None)
  Receive Date: 20060315
  Receipt Date: 20060206
  Transmission Date: 20060701
  Serious: Yes (Death)
  Sender: FDA-Public Use
  Company Number: IT-NOVOPROD-250709

PATIENT
  Age: 80 Year
  Sex: Male
  Weight: 80 kg

DRUGS (6)
  1. NOVOSEVEN [Suspect]
     Indication: ACQUIRED HAEMOPHILIA WITH ANTI FVIII, XI, OR XIII
     Dates: start: 20011130, end: 20011207
  2. AMIODARONE [Concomitant]
  3. FUROSEMIDE [Concomitant]
     Dates: start: 19990101
  4. TRANEXAMIC ACID [Concomitant]
     Dates: start: 20011001
  5. ENALAPRIL MALEATE [Concomitant]
     Dates: start: 20011101
  6. INSULIN [Concomitant]
     Indication: DIABETES MELLITUS
     Dates: start: 20011101

REACTIONS (1)
  - ARRHYTHMIA [None]
